FAERS Safety Report 4754618-7 (Version None)
Quarter: 2005Q3

REPORT INFORMATION
  Report Type: 
  Country: None (occurrence: None)
  Receive Date: 20050829
  Receipt Date: 20050126
  Transmission Date: 20060218
  Serious: Yes (Other)
  Sender: FDA-Public Use
  Company Number: FR-GLAXOSMITHKLINE-B0369088A

PATIENT
  Age: 61 Year
  Sex: Female
  Weight: 69 kg

DRUGS (8)
  1. AVANDIA [Suspect]
     Indication: DIABETES MELLITUS NON-INSULIN-DEPENDENT
     Route: 048
     Dates: start: 20040701
  2. KARDEGIC [Suspect]
  3. GLYBURIDE [Concomitant]
     Indication: DIABETES MELLITUS
     Dosage: 15MG PER DAY
     Route: 048
     Dates: start: 19950101
  4. GLUCOPHAGE [Concomitant]
     Indication: DIABETES MELLITUS
     Dosage: 1000MG THREE TIMES PER DAY
     Route: 048
     Dates: start: 19950101
  5. LIPANTHYL [Concomitant]
     Route: 048
  6. ALDACTAZINE [Concomitant]
     Route: 048
  7. LEVOTHYROXINE SODIUM [Concomitant]
     Route: 048
  8. DETENSIEL [Concomitant]
     Indication: HYPERTENSION
     Dosage: 10MG PER DAY
     Dates: start: 19950101

REACTIONS (3)
  - ANAEMIA [None]
  - BLOOD IRON DECREASED [None]
  - GASTRITIS EROSIVE [None]
